FAERS Safety Report 22077354 (Version 1)
Quarter: 2023Q1

REPORT INFORMATION
  Report Type: Spontaneous
  Country: CA (occurrence: CA)
  Receive Date: 20230309
  Receipt Date: 20230309
  Transmission Date: 20230418
  Serious: Yes (Other)
  Sender: FDA-Public Use
  Company Number: CA-PFIZER INC-202300096625

PATIENT
  Age: 71 Year

DRUGS (3)
  1. ABRILADA [Suspect]
     Active Substance: ADALIMUMAB-AFZB
     Dosage: UNK
  2. ESTROGENS [Concomitant]
     Active Substance: ESTROGENS
     Dosage: UNK
  3. METHOTREXATE [Concomitant]
     Active Substance: METHOTREXATE
     Dosage: 1 DF, 4PILLS - UNK DOSE
     Route: 048
     Dates: start: 2014

REACTIONS (2)
  - Foot operation [Unknown]
  - Device difficult to use [Unknown]
